FAERS Safety Report 4811982-8 (Version None)
Quarter: 2005Q4

REPORT INFORMATION
  Report Type: 
  Country: None (occurrence: None)
  Receive Date: 20051028
  Receipt Date: 20041022
  Transmission Date: 20060501
  Serious: No
  Sender: FDA-Public Use
  Company Number: US-GLAXOSMITHKLINE-A0530915A

PATIENT
  Sex: Female

DRUGS (2)
  1. ADVAIR DISKUS 100/50 [Suspect]
     Indication: ASTHMA
     Route: 055
     Dates: start: 20040101
  2. ALBUTEROL [Concomitant]
     Route: 055

REACTIONS (4)
  - DYSMENORRHOEA [None]
  - SLEEP DISORDER [None]
  - SWELLING FACE [None]
  - WEIGHT INCREASED [None]
